FAERS Safety Report 7576914-0 (Version None)
Quarter: 2011Q2

REPORT INFORMATION
  Report Type: 
  Country: None (occurrence: None)
  Receive Date: 20110628
  Receipt Date: 20100116
  Transmission Date: 20111010
  Serious: Yes (Death, Other)
  Sender: FDA-Public Use
  Company Number: US-BAYER-201011159NA

PATIENT
  Age: 69 Year
  Sex: Female
  Weight: 63 kg

DRUGS (13)
  1. TRASYLOL [Suspect]
     Indication: CORONARY ARTERY BYPASS
     Dosage: 50 ML, Q1HR, INFUSION
     Route: 042
     Dates: start: 20000822, end: 20000822
  2. RED BLOOD CELLS [Concomitant]
     Dosage: 3 U, ONCE
     Route: 042
     Dates: start: 20000822
  3. LISINOPRIL [Concomitant]
     Dosage: 20 MG, UNK, LONG TERM USE
     Route: 048
     Dates: end: 20070101
  4. IBUPROFEN [Concomitant]
     Dosage: AS NEEDED, LONG TERM USE
     Route: 048
     Dates: end: 20070101
  5. ASPIRIN [Concomitant]
     Dosage: ONE
     Route: 048
     Dates: end: 20070101
  6. FENTANYL [Concomitant]
     Dosage: 100 MG, UNK
     Route: 042
     Dates: start: 20000822, end: 20000822
  7. LASIX [Concomitant]
     Dosage: 80 MG, UNK, LONG TERM USE
     Route: 048
     Dates: end: 20070101
  8. CEFUROXIME [Concomitant]
     Dosage: 3 G, UNK
     Route: 042
     Dates: start: 20000822, end: 20000822
  9. ZOCOR [Concomitant]
     Dosage: 50 MG, UNK
     Route: 048
     Dates: end: 20070101
  10. DIPYRIDAMOLE [Concomitant]
     Dosage: 50 MG, UNK
     Route: 048
  11. INSULIN [Concomitant]
     Dosage: 1ML/HR
     Route: 042
     Dates: start: 20000822, end: 20000822
  12. PLASMA [Concomitant]
     Dosage: 2 U, ONCE
     Route: 042
     Dates: start: 20000822, end: 20000822
  13. HEPARIN [Concomitant]
     Dosage: 10,000 UNITS
     Route: 042
     Dates: start: 20000822, end: 20000822

REACTIONS (14)
  - DEATH [None]
  - RENAL INJURY [None]
  - ANXIETY [None]
  - RENAL IMPAIRMENT [None]
  - CARDIAC DISORDER [None]
  - RENAL FAILURE [None]
  - CEREBROVASCULAR ACCIDENT [None]
  - UNEVALUABLE EVENT [None]
  - FEAR [None]
  - PAIN [None]
  - ORGAN FAILURE [None]
  - ANHEDONIA [None]
  - INJURY [None]
  - DEPRESSION [None]
